FAERS Safety Report 19122605 (Version 1)
Quarter: 2021Q2

REPORT INFORMATION
  Report Type: Spontaneous
  Country: US (occurrence: US)
  Receive Date: 20210412
  Receipt Date: 20210412
  Transmission Date: 20210717
  Serious: Yes (Death, Life-Threatening, Hospitalization)
  Sender: FDA-Public Use
  Company Number: US-KINDEVA DRUG DELIVERY L.P.-2109195

PATIENT
  Age: 69 Year
  Sex: Male

DRUGS (57)
  1. PACERONE [Suspect]
     Active Substance: AMIODARONE HYDROCHLORIDE
     Route: 048
     Dates: start: 20201215, end: 20201216
  2. DECADRON [Suspect]
     Active Substance: DEXAMETHASONE
     Dates: start: 20201216, end: 20201216
  3. PERIDEX [Suspect]
     Active Substance: CHLORHEXIDINE GLUCONATE
     Dates: start: 20201216, end: 20201223
  4. POLYVINYL ALCOHOL?POVIDONE [Suspect]
     Active Substance: POLYVINYL ALCOHOL\POVIDONE
     Route: 047
     Dates: start: 20201216, end: 20201223
  5. TYLENOL [Suspect]
     Active Substance: ACETAMINOPHEN
     Route: 048
     Dates: start: 20201216, end: 20201223
  6. SUBLIMAZE [Suspect]
     Active Substance: FENTANYL CITRATE
     Dates: start: 20201216, end: 20201223
  7. MEXITIL [Suspect]
     Active Substance: MEXILETINE HYDROCHLORIDE
     Route: 048
     Dates: start: 20201217, end: 20201223
  8. SODIUM CHLORIDE. [Suspect]
     Active Substance: SODIUM CHLORIDE
     Dates: start: 20201216, end: 20201223
  9. LIPITOR [Suspect]
     Active Substance: ATORVASTATIN CALCIUM
     Route: 048
     Dates: start: 20201215, end: 20201215
  10. CELEXA [Suspect]
     Active Substance: CITALOPRAM HYDROBROMIDE
     Route: 048
     Dates: start: 20201215, end: 20201216
  11. LOVENOX [Suspect]
     Active Substance: ENOXAPARIN SODIUM
     Route: 058
     Dates: start: 20201215, end: 20201216
  12. LOVENOX [Suspect]
     Active Substance: ENOXAPARIN SODIUM
     Dates: start: 20201216, end: 20201223
  13. SODIUM CHLORIDE. [Suspect]
     Active Substance: SODIUM CHLORIDE
     Route: 042
     Dates: start: 20201216, end: 20201223
  14. PLASMA?LYTE A [Suspect]
     Active Substance: MAGNESIUM CHLORIDE\POTASSIUM CHLORIDE\SODIUM ACETATE\SODIUM CHLORIDE\SODIUM GLUCONATE
     Dates: start: 20201216, end: 20201217
  15. TYLENOL [Suspect]
     Active Substance: ACETAMINOPHEN
     Route: 054
     Dates: start: 20201216, end: 20201223
  16. ADMELOG [Suspect]
     Active Substance: INSULIN LISPRO
     Dates: start: 20201216, end: 20201221
  17. NORCURON [Suspect]
     Active Substance: VECURONIUM BROMIDE
     Dates: start: 20201216, end: 20201217
  18. DECADRON [Suspect]
     Active Substance: DEXAMETHASONE
     Dates: start: 20201215, end: 20201215
  19. SODIUM CHLORIDE. [Suspect]
     Active Substance: SODIUM CHLORIDE
     Route: 042
     Dates: start: 20201215, end: 20201216
  20. TYLENOL [Suspect]
     Active Substance: ACETAMINOPHEN
     Route: 048
     Dates: start: 20201215, end: 20201216
  21. NARCAN [Suspect]
     Active Substance: NALOXONE HYDROCHLORIDE
     Dates: start: 20201216, end: 20201223
  22. COLACE [Suspect]
     Active Substance: DOCUSATE SODIUM
     Route: 048
     Dates: start: 20201216, end: 20201223
  23. COLACE [Suspect]
     Active Substance: DOCUSATE SODIUM
     Dates: start: 20201216, end: 20201223
  24. SODIUM CHLORIDE. [Suspect]
     Active Substance: SODIUM CHLORIDE
     Route: 055
     Dates: start: 20201216, end: 20201223
  25. ZINC SULFATE (ZINCATE)220 (50)MG CAPSULE [Suspect]
     Active Substance: ZINC SULFATE
     Route: 048
     Dates: start: 20201216, end: 20201223
  26. PROVENTIL HFA [Suspect]
     Active Substance: ALBUTEROL SULFATE
  27. PEPCID [Suspect]
     Active Substance: FAMOTIDINE
     Route: 048
     Dates: start: 20201215, end: 20201216
  28. PROVENTIL HFA [Suspect]
     Active Substance: ALBUTEROL SULFATE
     Route: 055
     Dates: start: 20201216, end: 20201217
  29. LEVOPHED(R) NOREPINEPHRINE BITARTRATE [Suspect]
     Active Substance: NOREPINEPHRINE BITARTRATE
     Dates: start: 20201216, end: 20201223
  30. SYNTHROID [Suspect]
     Active Substance: LEVOTHYROXINE SODIUM
     Route: 048
     Dates: start: 20201215, end: 20201216
  31. MEXITIL [Suspect]
     Active Substance: MEXILETINE HYDROCHLORIDE
     Route: 048
     Dates: start: 20201215, end: 20201216
  32. DECADRON [Suspect]
     Active Substance: DEXAMETHASONE
     Dates: start: 20201215, end: 20201215
  33. ZOFRAN [Suspect]
     Active Substance: ONDANSETRON HYDROCHLORIDE
     Dates: start: 20201216, end: 20201223
  34. SENNA [Suspect]
     Active Substance: SENNA LEAF\SENNOSIDES\SENNOSIDES A AND B
     Route: 048
     Dates: start: 20201216, end: 20201223
  35. SODIUM CHLORIDE. [Suspect]
     Active Substance: SODIUM CHLORIDE
     Dates: start: 20201216, end: 20201223
  36. MELATONIN TABLET 10MG [Suspect]
     Active Substance: MELATONIN
     Route: 048
     Dates: start: 20201216, end: 20201223
  37. SODIUM CHLORIDE. [Suspect]
     Active Substance: SODIUM CHLORIDE
     Dates: start: 20201216, end: 20201223
  38. REGULAR STRENGTH ASPIRIN EC [Suspect]
     Active Substance: ASPIRIN
     Route: 048
     Dates: start: 20201215, end: 20201216
  39. NARCAN [Suspect]
     Active Substance: NALOXONE HYDROCHLORIDE
     Route: 050
     Dates: start: 20201215, end: 20201216
  40. DECADRON [Suspect]
     Active Substance: DEXAMETHASONE
     Route: 050
     Dates: start: 20201215, end: 20201215
  41. LIPITOR [Suspect]
     Active Substance: ATORVASTATIN CALCIUM
     Route: 048
     Dates: start: 20201216, end: 20201216
  42. PEPCID [Suspect]
     Active Substance: FAMOTIDINE
     Dates: start: 20201216, end: 20201223
  43. DIPRIVAN [Suspect]
     Active Substance: PROPOFOL
     Dates: start: 20201216, end: 20201223
  44. DIPRIVAN [Suspect]
     Active Substance: PROPOFOL
     Route: 040
     Dates: start: 20201216, end: 20201223
  45. CHOLCALCIFEROL (VITAMOL D3) 2000 UNIT TABLET [Suspect]
     Active Substance: CHOLECALCIFEROL
     Route: 048
     Dates: start: 20201216, end: 20201223
  46. PROVENTIL HFA [Suspect]
     Active Substance: ALBUTEROL SULFATE
     Route: 055
     Dates: start: 20201215, end: 20201216
  47. CLARITIN [Suspect]
     Active Substance: LORATADINE
     Route: 048
     Dates: start: 20201215, end: 20201216
  48. TESSALON [Suspect]
     Active Substance: BENZONATATE
     Route: 048
     Dates: start: 20201215, end: 20201216
  49. TYLENOL [Suspect]
     Active Substance: ACETAMINOPHEN
     Route: 048
     Dates: start: 20201215, end: 20201223
  50. TYLENOL [Suspect]
     Active Substance: ACETAMINOPHEN
     Dates: start: 20201216, end: 20201223
  51. SUBLIMAZE [Suspect]
     Active Substance: FENTANYL CITRATE
     Route: 040
     Dates: start: 20201216, end: 20201223
  52. NORCURON [Suspect]
     Active Substance: VECURONIUM BROMIDE
     Dates: start: 20201216, end: 20201217
  53. ASCORBIC ACID (VITAMIN C) 500MG CHEW TABLET [Suspect]
     Active Substance: ASCORBIC ACID
     Route: 048
     Dates: start: 20201216, end: 20201223
  54. NOREPINEPHRINE (QUAD) 16MG/250ML INFUSION [Suspect]
     Active Substance: NOREPINEPHRINE
     Dates: start: 20201216, end: 20201223
  55. ATIVAN [Suspect]
     Active Substance: LORAZEPAM
     Dates: start: 20201216, end: 20201223
  56. SENNA LAXATIVE [Suspect]
     Active Substance: SENNOSIDES
     Route: 048
     Dates: start: 20201216, end: 20201223
  57. POLYVINYL ALCOHOL?POVIDONE [Suspect]
     Active Substance: POLYVINYL ALCOHOL\POVIDONE
     Route: 047
     Dates: start: 20201216, end: 20201223

REACTIONS (1)
  - COVID-19 pneumonia [Fatal]

NARRATIVE: CASE EVENT DATE: 20201215
